FAERS Safety Report 5140408-2 (Version None)
Quarter: 2006Q4

REPORT INFORMATION
  Report Type: 
  Country: None (occurrence: None)
  Receive Date: 20061031
  Receipt Date: 20061026
  Transmission Date: 20070319
  Serious: Yes (Death, Hospitalization)
  Sender: FDA-Public Use
  Company Number: NL-SANOFI-SYNTHELABO-F01200602207

PATIENT
  Sex: Male

DRUGS (8)
  1. BUSOPROLOL [Concomitant]
  2. SIMVASTATIN [Concomitant]
  3. OXAZEPAM [Concomitant]
  4. CETUXIMAB [Suspect]
     Indication: COLORECTAL CANCER
     Dosage: 850 MG DAY 1 OF CYCLE 1, THEREAFTER 530 MG WEEKLY
     Route: 041
     Dates: start: 20061003, end: 20061003
  5. BEVACIZUMAB [Suspect]
     Indication: COLORECTAL CANCER
     Route: 041
     Dates: start: 20061003, end: 20061003
  6. CAPECITABINE [Suspect]
     Indication: COLORECTAL CANCER
     Dosage: DAYS 1-14 (1250 MG/M2 AFTER CYCLE 6) 4000 MG
     Route: 048
     Dates: start: 20061003
  7. OXALIPLATIN [Suspect]
     Indication: COLORECTAL CANCER
     Route: 041
     Dates: start: 20061003, end: 20061003
  8. ASCAL CARDIO [Concomitant]

REACTIONS (4)
  - DEHYDRATION [None]
  - DIARRHOEA [None]
  - LEUKOPENIA [None]
  - THROMBOCYTOPENIA [None]
